FAERS Safety Report 5001773-X (Version None)
Quarter: 2006Q2

REPORT INFORMATION
  Report Type: 
  Country: None (occurrence: None)
  Receive Date: 20060515
  Receipt Date: 20060320
  Transmission Date: 20061013
  Serious: Yes (Death)
  Sender: FDA-Public Use
  Company Number: FR-BRISTOL-MYERS SQUIBB COMPANY-13329230

PATIENT
  Age: 85 Year
  Sex: Female
  Weight: 45 kg

DRUGS (3)
  1. ERBITUX [Suspect]
     Indication: SQUAMOUS CELL CARCINOMA
     Route: 042
     Dates: start: 20060302, end: 20060302
  2. CATAPRES [Concomitant]
     Indication: HYPERTENSION
  3. SERESTA [Concomitant]
     Indication: INSOMNIA

REACTIONS (3)
  - DEATH [None]
  - FACIAL PALSY [None]
  - MALIGNANT NEOPLASM PROGRESSION [None]
